FAERS Safety Report 7435820-2 (Version None)
Quarter: 2011Q2

REPORT INFORMATION
  Report Type: 
  Country: None (occurrence: None)
  Receive Date: 20110425
  Receipt Date: 20110419
  Transmission Date: 20111010
  Serious: Yes (Hospitalization, Other)
  Sender: FDA-Public Use
  Company Number: US-JNJFOC-20110312300

PATIENT
  Sex: Male
  Weight: 120.66 kg

DRUGS (2)
  1. REMICADE [Suspect]
     Indication: RHEUMATOID ARTHRITIS
     Dosage: 5.8MG/KG
     Route: 042
  2. SIMPONI [Suspect]
     Indication: RHEUMATOID ARTHRITIS
     Route: 065

REACTIONS (3)
  - CHEST DISCOMFORT [None]
  - HYPOTENSION [None]
  - SYNCOPE [None]
